FAERS Safety Report 9747781 (Version 2)
Quarter: 2013Q4

REPORT INFORMATION
  Report Type: Spontaneous
  Country: US (occurrence: US)
  Receive Date: 20131212
  Receipt Date: 20131212
  Transmission Date: 20140711
  Serious: Yes (Other)
  Sender: FDA-Public Use
  Company Number: US-TEVA-385991USA

PATIENT
  Age: 41 Year
  Sex: Female
  Weight: 56.75 kg

DRUGS (3)
  1. PARAGARD 380A [Suspect]
     Indication: CONTRACEPTION
     Route: 015
  2. MACAFEN [Concomitant]
  3. ADRENAL [Concomitant]

REACTIONS (4)
  - Pregnancy with contraceptive device [Unknown]
  - Menstruation delayed [Unknown]
  - Breast tenderness [Unknown]
  - Abdominal pain [Not Recovered/Not Resolved]
